FAERS Safety Report 13805929 (Version 1)
Quarter: 2017Q3

REPORT INFORMATION
  Report Type: Spontaneous
  Country: US (occurrence: US)
  Receive Date: 20170728
  Receipt Date: 20170728
  Transmission Date: 20171127
  Serious: No
  Sender: FDA-Public Use
  Company Number: US-IGSA-GTI004472

PATIENT
  Age: 44 Year
  Sex: Female
  Weight: 58 kg

DRUGS (22)
  1. LYRICA [Concomitant]
     Active Substance: PREGABALIN
     Dosage: UNK
  2. PERCOCET                           /00446701/ [Concomitant]
     Active Substance: ACETAMINOPHEN\OXYCODONE HYDROCHLORIDE\OXYCODONE TEREPHTHALATE
     Dosage: UNK
  3. CELEBREX [Concomitant]
     Active Substance: CELECOXIB
     Dosage: UNK
  4. TRAZODONE [Concomitant]
     Active Substance: TRAZODONE HYDROCHLORIDE
     Dosage: UNK
  5. LIDODERM [Concomitant]
     Active Substance: LIDOCAINE
     Dosage: UNK
  6. MULTIVITAMIN                       /05516001/ [Concomitant]
     Dosage: UNK
  7. GAMUNEX-C [Suspect]
     Active Substance: HUMAN IMMUNOGLOBULIN G
     Indication: CHRONIC INFLAMMATORY DEMYELINATING POLYRADICULONEUROPATHY
     Dosage: 30 G, Q.O.WK.
     Route: 042
     Dates: start: 20160801, end: 20160801
  8. GAMMAKED [Concomitant]
     Active Substance: HUMAN IMMUNOGLOBULIN G
     Indication: CHRONIC INFLAMMATORY DEMYELINATING POLYRADICULONEUROPATHY
     Dosage: 30 G, Q.O.WK.
     Route: 042
     Dates: start: 201501, end: 20160801
  9. FLURAZEPAM [Concomitant]
     Active Substance: FLURAZEPAM\FLURAZEPAM HYDROCHLORIDE
     Dosage: UNK
  10. CELLCEPT [Concomitant]
     Active Substance: MYCOPHENOLATE MOFETIL\MYCOPHENOLATE MOFETIL HYDROCHLORIDE
     Indication: LUPUS-LIKE SYNDROME
     Dosage: UNK
     Dates: start: 2016, end: 20160727
  11. POTASSIUM [Concomitant]
     Active Substance: POTASSIUM
     Dosage: UNK
  12. TOPAMAX [Concomitant]
     Active Substance: TOPIRAMATE
     Dosage: UNK
  13. GAMUNEX-C [Suspect]
     Active Substance: HUMAN IMMUNOGLOBULIN G
     Indication: NEUROPATHY PERIPHERAL
  14. BACLOFEN. [Concomitant]
     Active Substance: BACLOFEN
     Dosage: UNK
  15. PROVIGIL [Concomitant]
     Active Substance: MODAFINIL
     Dosage: UNK
  16. PREDNISONE. [Concomitant]
     Active Substance: PREDNISONE
     Dosage: UNK
  17. VITAMIN B2                         /00154901/ [Concomitant]
     Dosage: UNK
  18. VITAMIN D [Concomitant]
     Active Substance: CHOLECALCIFEROL
     Dosage: UNK
  19. VITAMIN C                          /08066501/ [Concomitant]
     Dosage: UNK
  20. GAMMAKED [Concomitant]
     Active Substance: HUMAN IMMUNOGLOBULIN G
     Indication: NEUROPATHY PERIPHERAL
  21. GAMMAKED [Concomitant]
     Active Substance: HUMAN IMMUNOGLOBULIN G
     Indication: IMMUNE THROMBOCYTOPENIC PURPURA
  22. CYMBALTA [Concomitant]
     Active Substance: DULOXETINE HYDROCHLORIDE
     Dosage: UNK

REACTIONS (4)
  - Nausea [Recovered/Resolved]
  - Headache [Recovered/Resolved]
  - Therapeutic response decreased [Not Recovered/Not Resolved]
  - Dystonia [Recovered/Resolved]

NARRATIVE: CASE EVENT DATE: 20160801
